FAERS Safety Report 6843565-2 (Version None)
Quarter: 2010Q3

REPORT INFORMATION
  Report Type: 
  Country: None (occurrence: None)
  Receive Date: 20100715
  Receipt Date: 20100705
  Transmission Date: 20110219
  Serious: Yes (Other)
  Sender: FDA-Public Use
  Company Number: CA-JNJFOC-20100702023

PATIENT
  Sex: Male
  Weight: 68 kg

DRUGS (3)
  1. REMICADE [Suspect]
     Indication: CROHN'S DISEASE
     Route: 042
  2. SOLU-CORTEF [Suspect]
     Indication: PREMEDICATION
     Route: 042
  3. SOLU-CORTEF [Suspect]
     Route: 042

REACTIONS (3)
  - DYSPNOEA [None]
  - FLUSHING [None]
  - PAINFUL RESPIRATION [None]
